FAERS Safety Report 4376246-8 (Version None)
Quarter: 2004Q2

REPORT INFORMATION
  Report Type: 
  Country: None (occurrence: None)
  Receive Date: 20040611
  Receipt Date: 20040604
  Transmission Date: 20050107
  Serious: Yes (Other)
  Sender: FDA-Public Use
  Company Number: CH-MERCK-0406CHE00006

PATIENT
  Age: 55 Year
  Sex: Male

DRUGS (5)
  1. ASPIRIN [Concomitant]
     Indication: PROPHYLAXIS
     Route: 048
     Dates: start: 20031001
  2. ATENOLOL [Concomitant]
     Indication: HYPERTENSION
     Route: 048
     Dates: start: 20031001, end: 20031101
  3. ZOCOR [Suspect]
     Indication: HYPERCHOLESTEROLAEMIA
     Route: 048
     Dates: start: 20031001, end: 20031101
  4. ZOCOR [Suspect]
     Route: 048
     Dates: start: 20031101, end: 20031101
  5. ZOCOR [Suspect]
     Route: 048
     Dates: start: 20040201, end: 20040301

REACTIONS (2)
  - HEPATOCELLULAR DAMAGE [None]
  - LYMPHADENOPATHY [None]
